FAERS Safety Report 10219606 (Version 1)
Quarter: 2014Q2

REPORT INFORMATION
  Report Type: Report from Study
  Country: RO (occurrence: RO)
  Receive Date: 20140605
  Receipt Date: 20140605
  Transmission Date: 20141212
  Serious: Yes (Life-Threatening, Hospitalization)
  Sender: FDA-Public Use
  Company Number: RO-GLAXOSMITHKLINE-B0999152A

PATIENT
  Age: 52 Year
  Sex: Male
  Weight: 90 kg

DRUGS (12)
  1. FLUTICASONE FUROATE [Suspect]
     Indication: CHRONIC OBSTRUCTIVE PULMONARY DISEASE
     Dosage: 100MCG PER DAY
     Route: 055
     Dates: start: 20120202
  2. DILTIAZEM [Concomitant]
     Indication: ANGINA PECTORIS
     Dosage: 60MG PER DAY
     Route: 048
     Dates: start: 2011
  3. DILTIAZEM [Concomitant]
     Indication: HYPERTENSION
     Route: 048
     Dates: start: 20140413, end: 20140413
  4. DILTIAZEM [Concomitant]
     Indication: TACHYARRHYTHMIA
  5. TRITTICO [Concomitant]
     Indication: DEPRESSION
     Dosage: 100MG PER DAY
     Route: 048
     Dates: start: 20130508
  6. FUROSEMID [Concomitant]
     Indication: HYPERTENSION
     Dosage: 40MG TWO TIMES PER WEEK
     Route: 048
     Dates: start: 20130807, end: 20140511
  7. NITROGLICERINA [Concomitant]
     Indication: ANGINA PECTORIS
     Route: 060
     Dates: start: 20130705
  8. INDAPAMIDE + PERINDOPRIL [Concomitant]
     Indication: HYPERTENSION
     Route: 048
     Dates: start: 20140206, end: 20140511
  9. EURESPAL [Concomitant]
     Indication: CHRONIC OBSTRUCTIVE PULMONARY DISEASE
     Dosage: 80MG TWICE PER DAY
     Route: 048
     Dates: start: 20140501, end: 20140520
  10. ERDOMED [Concomitant]
     Indication: CHRONIC OBSTRUCTIVE PULMONARY DISEASE
     Dosage: 300MG TWICE PER DAY
     Route: 048
     Dates: start: 20140501, end: 20140520
  11. AUGMENTIN [Concomitant]
     Indication: CHRONIC OBSTRUCTIVE PULMONARY DISEASE
     Dosage: 1G TWICE PER DAY
     Route: 048
     Dates: start: 20140422, end: 20140427
  12. ASPENTER [Concomitant]
     Indication: ANGINA PECTORIS
     Route: 048
     Dates: start: 2011, end: 20140512

REACTIONS (2)
  - Cardiac failure acute [Recovered/Resolved]
  - Atrial flutter [Recovered/Resolved]
